FAERS Safety Report 13373968 (Version 1)
Quarter: 2017Q1

REPORT INFORMATION
  Report Type: Spontaneous
  Country: US (occurrence: US)
  Receive Date: 20170327
  Receipt Date: 20170327
  Transmission Date: 20170429
  Serious: No
  Sender: FDA-Public Use
  Company Number: None

PATIENT
  Age: 72 Year
  Sex: Female
  Weight: 156.63 kg

DRUGS (1)
  1. ALLOPURINOL 300MG TAB [Suspect]
     Active Substance: ALLOPURINOL
     Indication: GOUT
     Route: 048
     Dates: start: 20161201

REACTIONS (6)
  - Local swelling [None]
  - Ear swelling [None]
  - Swelling face [None]
  - Skin exfoliation [None]
  - Eye swelling [None]
  - Erythema [None]

NARRATIVE: CASE EVENT DATE: 201612
